FAERS Safety Report 5648354-2 (Version None)
Quarter: 2008Q1

REPORT INFORMATION
  Report Type: 
  Country: None (occurrence: None)
  Receive Date: 20080303
  Receipt Date: 20080303
  Transmission Date: 20080703
  Serious: No
  Sender: FDA-Public Use
  Company Number: None

PATIENT
  Age: 51 Year
  Sex: Female
  Weight: 63.5036 kg

DRUGS (1)
  1. ACETAMINOPHEN AND CODEINE PHOSPHATE #3 [Suspect]
     Indication: COSTOCHONDRITIS
     Dosage: #3 CODEINE EVERY 4 HOURS PO
     Route: 048
     Dates: start: 20080131, end: 20080303

REACTIONS (4)
  - ABDOMINAL PAIN [None]
  - HYPERHIDROSIS [None]
  - PRURITUS [None]
  - RASH PRURITIC [None]
